FAERS Safety Report 24406979 (Version 1)
Quarter: 2024Q4

REPORT INFORMATION
  Report Type: Spontaneous
  Country: US (occurrence: None)
  Receive Date: 20241007
  Receipt Date: 20241007
  Transmission Date: 20250114
  Serious: Yes (Death, Hospitalization, Other)
  Sender: UNICHEM
  Company Number: US-Unichem Pharmaceuticals (USA) Inc-UCM202410-001268

PATIENT
  Age: 20 Year
  Sex: Female

DRUGS (9)
  1. AMLODIPINE [Suspect]
     Active Substance: AMLODIPINE BESYLATE
     Indication: Product used for unknown indication
     Dosage: UNKNOWN
     Route: 065
  2. FLUOXETINE [Suspect]
     Active Substance: FLUOXETINE HYDROCHLORIDE
     Indication: Product used for unknown indication
     Dosage: UNKNOWN
     Route: 065
  3. NOREPINEPHRINE [Concomitant]
     Active Substance: NOREPINEPHRINE\NOREPINEPHRINE BITARTRATE
     Indication: Pulmonary arterial pressure abnormal
     Dosage: UNKNOWN
     Route: 065
  4. CALCIUM [Concomitant]
     Active Substance: CALCIUM
     Indication: Product used for unknown indication
     Dosage: UNKNOWN
     Route: 065
  5. Insulin bolus [Concomitant]
     Indication: Product used for unknown indication
     Dosage: UNKNOWN
     Route: 065
  6. EPINEPHRINE [Concomitant]
     Active Substance: EPINEPHRINE
     Indication: Pulmonary arterial pressure abnormal
     Dosage: UNKNOWN
     Route: 065
  7. VASOPRESSIN [Concomitant]
     Active Substance: VASOPRESSIN
     Indication: Pulmonary arterial pressure abnormal
     Dosage: UNKNOWN
     Route: 065
  8. PHENYLEPHRINE [Concomitant]
     Active Substance: PHENYLEPHRINE HYDROCHLORIDE
     Indication: Pulmonary arterial pressure abnormal
     Dosage: UNKNOWN
     Route: 065
  9. HYDROXOCOBALAMIN [Concomitant]
     Active Substance: HYDROXOCOBALAMIN
     Indication: Pulmonary arterial pressure abnormal
     Dosage: UNKNOWN
     Route: 065

REACTIONS (11)
  - Generalised oedema [Unknown]
  - Respiratory distress [Recovered/Resolved]
  - Renal impairment [Unknown]
  - Cardiac arrest [Fatal]
  - Condition aggravated [Unknown]
  - Hypoxia [Unknown]
  - Vasoplegia syndrome [Unknown]
  - Non-cardiogenic pulmonary oedema [Recovered/Resolved]
  - Somnolence [Unknown]
  - Toxicity to various agents [Unknown]
  - Overdose [Unknown]
